FAERS Safety Report 21261086 (Version 1)
Quarter: 2022Q3

REPORT INFORMATION
  Report Type: Report from Study
  Country: GB (occurrence: GB)
  Receive Date: 20220826
  Receipt Date: 20220826
  Transmission Date: 20221026
  Serious: Yes (Death, Life-Threatening, Hospitalization, Disabling, Other)
  Sender: FDA-Public Use
  Company Number: GB-BRISTOL-MYERS SQUIBB COMPANY-2022-094757

PATIENT
  Age: 72 Year
  Sex: Male
  Weight: 75 kg

DRUGS (23)
  1. NIVOLUMAB [Suspect]
     Active Substance: NIVOLUMAB
     Indication: Squamous cell carcinoma of lung
     Route: 042
     Dates: start: 20210623
  2. DEXAMETHASONE [Concomitant]
     Active Substance: DEXAMETHASONE
     Indication: Dyspnoea
     Route: 048
     Dates: start: 20220303
  3. DEXAMETHASONE [Concomitant]
     Active Substance: DEXAMETHASONE
     Indication: Decreased appetite
     Route: 048
     Dates: start: 20220325
  4. DEXAMETHASONE [Concomitant]
     Active Substance: DEXAMETHASONE
     Indication: Fatigue
  5. ALBUTEROL [Concomitant]
     Active Substance: ALBUTEROL
     Indication: Chronic obstructive pulmonary disease
     Dosage: 1 DF = 1 INHALATION
     Route: 055
  6. TRELEGY ELLIPTA [Concomitant]
     Active Substance: FLUTICASONE FUROATE\UMECLIDINIUM BROMIDE\VILANTEROL TRIFENATATE
     Indication: Chronic obstructive pulmonary disease
     Dosage: 1 DF = 1 NHALATION
     Route: 055
     Dates: start: 2016
  7. CALCIUM\CHOLECALCIFEROL [Concomitant]
     Active Substance: CALCIUM\CHOLECALCIFEROL
     Indication: Chronic obstructive pulmonary disease
     Dosage: 1 DF = 1TABLET
     Route: 048
     Dates: start: 20190902
  8. CETIRIZINE [Concomitant]
     Active Substance: CETIRIZINE HYDROCHLORIDE
     Indication: Pruritus
     Dosage: 10 MG
     Route: 048
     Dates: start: 20210119
  9. CLOBESTASONE BUTYRATE [Concomitant]
     Indication: Rash
     Dosage: 1 DF = 1 T FINGERTIP UNIT
     Route: 061
     Dates: start: 20210610
  10. CHLOROCRESOL [Concomitant]
     Active Substance: CHLOROCRESOL
     Indication: Pruritus
     Dosage: 1 DF =1  FINGERTIP UNIT?FREQUENCY : PRN
     Route: 061
     Dates: start: 20210803
  11. DULCOEASE [Concomitant]
     Active Substance: DOCUSATE SODIUM
     Indication: Constipation
     Dosage: 100 MG
     Route: 048
     Dates: start: 20211110
  12. LANOLIN\LIGHT MINERAL OIL\PARAFFIN [Concomitant]
     Active Substance: LANOLIN\LIGHT MINERAL OIL\PARAFFIN
     Indication: Pruritus
     Dosage: 1 DF = 1 FINGERTIP UNIT?FREQUENCY : PRN
     Route: 061
     Dates: start: 20220124
  13. EPIMA X EXCETRA [Concomitant]
     Indication: Rash
     Dosage: 1 DF = 1 FINGERTIP UNIT?FREQUENCY : PRN
     Route: 061
     Dates: start: 20201201
  14. FERROUS FUMARATE [Concomitant]
     Active Substance: FERROUS FUMARATE
     Indication: Anaemia
     Dosage: 210 MG
     Route: 048
     Dates: start: 20220105
  15. FORTISIPS [Concomitant]
     Indication: Decreased appetite
     Dosage: 1 DF = 1 BOTTLE?FREQUENCY : PRN
     Route: 048
     Dates: start: 20220105
  16. LANSOPRAZOLE [Concomitant]
     Active Substance: LANSOPRAZOLE
     Indication: Prophylaxis
     Dosage: 30 MG
     Route: 048
     Dates: start: 20220221
  17. LEVOFLOXACIN [Concomitant]
     Active Substance: LEVOFLOXACIN
     Indication: Pyrexia
     Dosage: 500 MG
     Route: 048
     Dates: start: 20220308, end: 20220312
  18. MORPHINE SULFATE [Concomitant]
     Active Substance: MORPHINE SULFATE
     Indication: Dyspnoea
     Dosage: 2.5 MG?FREQUENCY : PRN
     Route: 048
     Dates: start: 20220314
  19. VITAMINS [Concomitant]
     Active Substance: VITAMINS
     Indication: Prophylaxis
     Dosage: 1 DF = 1 TABLET
     Route: 048
     Dates: start: 20210301
  20. ACETAMINOPHEN [Concomitant]
     Active Substance: ACETAMINOPHEN
     Indication: Arthralgia
     Dosage: FREQUENCY : PRN
     Route: 048
     Dates: start: 20210914
  21. SENNA [Concomitant]
     Active Substance: SENNA LEAF\SENNOSIDES\SENNOSIDES A AND B
     Indication: Constipation
     Dosage: UNK TABLET
     Route: 048
     Dates: start: 20210715
  22. SODIUM DUSOSATE [Concomitant]
     Indication: Constipation
     Route: 048
     Dates: start: 20211208
  23. VOLTAROL [Concomitant]
     Active Substance: DICLOFENAC SODIUM
     Indication: Arthralgia
     Dosage: 1 DF = 1 FINGERTIP UNIT
     Route: 061
     Dates: start: 20220124, end: 20220324

REACTIONS (2)
  - Chest pain [Unknown]
  - Death [Fatal]

NARRATIVE: CASE EVENT DATE: 20220101
